FAERS Safety Report 26051686 (Version 2)
Quarter: 2025Q4

REPORT INFORMATION
  Report Type: Spontaneous
  Country: US (occurrence: US)
  Receive Date: 20251117
  Receipt Date: 20251125
  Transmission Date: 20260119
  Serious: No
  Sender: ABBVIE
  Company Number: US-ABBVIE-6551887

PATIENT
  Age: 59 Year
  Sex: Female
  Weight: 72.574 kg

DRUGS (1)
  1. RESTASIS [Suspect]
     Active Substance: CYCLOSPORINE
     Indication: Dry eye
     Dosage: FORM STRENGTH: 1 DROPS
     Route: 047
     Dates: start: 2020

REACTIONS (7)
  - Gastrooesophageal reflux disease [Unknown]
  - Multiple use of single-use product [Unknown]
  - Weight increased [Unknown]
  - Cough [Unknown]
  - Dysphonia [Unknown]
  - Restlessness [Unknown]
  - Hiatus hernia [Unknown]

NARRATIVE: CASE EVENT DATE: 20200101
